FAERS Safety Report 15452873 (Version 2)
Quarter: 2018Q4

REPORT INFORMATION
  Report Type: Report from Study
  Country: GR (occurrence: GR)
  Receive Date: 20181001
  Receipt Date: 20181002
  Transmission Date: 20190204
  Serious: Yes (Hospitalization, Other)
  Sender: FDA-Public Use
  Company Number: GR-PFIZER INC-2018387924

PATIENT
  Age: 86 Year
  Sex: Female

DRUGS (12)
  1. COLCHICINE. [Suspect]
     Active Substance: COLCHICINE
     Indication: RESPIRATORY TRACT INFECTION
     Dosage: UNK
  2. ZODIN [RANITIDINE] [Concomitant]
     Indication: EPILEPSY
  3. DEPON [Suspect]
     Active Substance: ACETAMINOPHEN
     Indication: PAIN IN EXTREMITY
     Dosage: UNK
  4. ZYLORIC [Concomitant]
     Active Substance: ALLOPURINOL
     Indication: EPILEPSY
  5. KEPPRA [Concomitant]
     Active Substance: LEVETIRACETAM
     Indication: SUBDURAL HAEMATOMA
     Route: 048
  6. CALCIORAL [CALCIUM PHOSPHATE;ERGOCALCIFEROL] [Concomitant]
     Indication: OSTEOPOROSIS
  7. TERIPARATIDE [Suspect]
     Active Substance: TERIPARATIDE
     Indication: OSTEOPOROSIS
     Dosage: 20 UG, DAILY
  8. INEGY [Suspect]
     Active Substance: EZETIMIBE\SIMVASTATIN
     Indication: BLOOD CHOLESTEROL INCREASED
     Dosage: UNK
  9. KEPPRA [Concomitant]
     Active Substance: LEVETIRACETAM
     Indication: EPILEPSY
  10. CALCIORAL [CALCIUM PHOSPHATE;ERGOCALCIFEROL] [Concomitant]
     Indication: EPILEPSY
  11. ZYLORIC [Concomitant]
     Active Substance: ALLOPURINOL
     Indication: BLOOD URIC ACID INCREASED
  12. LYRICA [Suspect]
     Active Substance: PREGABALIN
     Indication: PAIN IN EXTREMITY
     Dosage: 150 MG, DAILY

REACTIONS (11)
  - Gait inability [Unknown]
  - Infection [Recovered/Resolved]
  - Transaminases increased [Unknown]
  - Diarrhoea [Unknown]
  - Gouty arthritis [Not Recovered/Not Resolved]
  - Fall [Unknown]
  - Peripheral swelling [Unknown]
  - Pain in extremity [Unknown]
  - Muscle strain [Not Recovered/Not Resolved]
  - C-reactive protein increased [Unknown]
  - Respiratory tract infection [Recovered/Resolved]

NARRATIVE: CASE EVENT DATE: 20180805
